FAERS Safety Report 4337270-4 (Version None)
Quarter: 2004Q2

REPORT INFORMATION
  Report Type: 
  Country: None (occurrence: None)
  Receive Date: 20040408
  Receipt Date: 20040329
  Transmission Date: 20050107
  Serious: Yes (Death)
  Sender: FDA-Public Use
  Company Number: 04P-167-0255601-00

PATIENT
  Age: 75 Year
  Sex: Female
  Weight: 55.6 kg

DRUGS (4)
  1. HUMIRA [Suspect]
     Indication: RHEUMATOID ARTHRITIS
     Dosage: 40 MG, SUBCUTANEOUS
     Route: 058
     Dates: start: 20011016, end: 20031229
  2. FLUCLOXACILLIN [Concomitant]
  3. CELECOXIB [Concomitant]
  4. CEPHALEXIN [Concomitant]

REACTIONS (2)
  - CHILLS [None]
  - LOBAR PNEUMONIA [None]
